FAERS Safety Report 4452512-2 (Version None)
Quarter: 2004Q3

REPORT INFORMATION
  Report Type: 
  Country: None (occurrence: None)
  Receive Date: 20040916
  Receipt Date: 20040902
  Transmission Date: 20050211
  Serious: Yes (Hospitalization)
  Sender: FDA-Public Use
  Company Number: 2004063613

PATIENT
  Age: 82 Year
  Sex: Female

DRUGS (10)
  1. ATORVASTATIN (ATORVASTATIN) [Suspect]
     Indication: ILL-DEFINED DISORDER
     Dosage: 10 MG (1 IN 1 D)
  2. BECLOMETASONE (BLECOMETASONE) [Concomitant]
  3. SALBUTAMOL (SALBUTAMOL) [Concomitant]
  4. PREDNISONE [Concomitant]
  5. LANSOPRAZOLE [Concomitant]
  6. FLUOXETINE [Concomitant]
  7. FRUMIL (AMILORIDE HYDROCHLORIDE, FUROSEMIDE) [Concomitant]
  8. LEKOVIT CA (CALCIUM CARBONATE, COLECALCIFEROL) [Concomitant]
  9. ACETAMINOPHEN [Concomitant]
  10. GLYCERYL TRINITRATE (GLYCERYL TRINITRATE0 [Concomitant]

REACTIONS (13)
  - ACTIVITIES OF DAILY LIVING IMPAIRED [None]
  - ANION GAP INCREASED [None]
  - BLOOD ALDOSTERONE INCREASED [None]
  - BLOOD CREATININE INCREASED [None]
  - DYSPNOEA [None]
  - GLOMERULAR FILTRATION RATE DECREASED [None]
  - HYPERVENTILATION [None]
  - HYPOCAPNIA [None]
  - LACTIC ACIDOSIS [None]
  - LOWER RESPIRATORY TRACT INFECTION [None]
  - MYOPATHY [None]
  - RENIN INCREASED [None]
  - VITAMIN B1 DEFICIENCY [None]
